FAERS Safety Report 6033858-3 (Version None)
Quarter: 2009Q1

REPORT INFORMATION
  Report Type: 
  Country: None (occurrence: None)
  Receive Date: 20090108
  Receipt Date: 20090108
  Transmission Date: 20090719
  Serious: Yes (Other)
  Sender: FDA-Public Use
  Company Number: None

PATIENT
  Sex: Male
  Weight: 86.6 kg

DRUGS (2)
  1. THERACYS [Suspect]
     Indication: BLADDER CANCER
     Dosage: 81MG/53 ML WEEKLY INTRA VESICULAR 1/2 DOSE
     Dates: start: 20081208
  2. THERACYS [Suspect]
     Indication: BLADDER CANCER
     Dosage: 81MG/53 ML WEEKLY INTRA VESICULAR 1/2 DOSE
     Dates: start: 20081223

REACTIONS (3)
  - BODY TEMPERATURE INCREASED [None]
  - BURNING SENSATION [None]
  - HAEMORRHAGE [None]
